FAERS Safety Report 8054403-7 (Version None)
Quarter: 2012Q1

REPORT INFORMATION
  Report Type: 
  Country: None (occurrence: None)
  Receive Date: 20120118
  Receipt Date: 20120109
  Transmission Date: 20120608
  Serious: Yes (Hospitalization, Other)
  Sender: FDA-Public Use
  Company Number: US-ASTRAZENECA-2011SE68880

PATIENT
  Age: 57 Year
  Sex: Female
  Weight: 80 kg

DRUGS (12)
  1. SEROQUEL XR [Suspect]
     Indication: BIPOLAR I DISORDER
     Route: 048
  2. PREDNISONE [Concomitant]
     Indication: ALLERGY TO PLANTS
  3. CALCIUM CARBONATE [Concomitant]
     Indication: MINERAL SUPPLEMENTATION
  4. FOSAMAX [Concomitant]
  5. FISHOIL [Concomitant]
  6. PAXIL [Concomitant]
  7. VITAMIN D [Concomitant]
  8. NEURONTIN [Concomitant]
  9. PRAVASTATIN [Concomitant]
  10. ATAVAND [Concomitant]
  11. PROTONIX [Concomitant]
     Indication: GASTROOESOPHAGEAL REFLUX DISEASE
  12. SEROQUEL XR [Suspect]
     Route: 048

REACTIONS (3)
  - DRUG DOSE OMISSION [None]
  - STRESS [None]
  - ILL-DEFINED DISORDER [None]
